FAERS Safety Report 9146184 (Version 2)
Quarter: 2013Q1

REPORT INFORMATION
  Report Type: Spontaneous
  Country: US (occurrence: None)
  Receive Date: 20130220
  Receipt Date: 20130318
  Transmission Date: 20140127
  Serious: Yes (Death, Other)
  Sender: FDA-Public Use
  Company Number: 1211-646

PATIENT
  Age: 90 Year
  Sex: Female
  Weight: 43.09 kg

DRUGS (7)
  1. EYLEA [Suspect]
     Indication: AGE-RELATED MACULAR DEGENERATION
     Dosage: 2 MG, PRN, INTRAVITREAL
     Route: 051
     Dates: start: 20110321
  2. OCUVITE(OCUVITE /01053801/) (TABLET) [Concomitant]
  3. TRAVATAN(TRAVOPROST) [Concomitant]
  4. LASTACAF(DROPS) [Concomitant]
  5. SYNTHROID(LEVOTHYROXINE SODIUM) [Concomitant]
  6. DIGOXIN(DIGOXIN) [Concomitant]
  7. AGGRENOX(ASASANTIN) (CAPSULE) [Concomitant]

REACTIONS (2)
  - Cerebrovascular accident [None]
  - Aspiration [None]
